FAERS Safety Report 11762231 (Version 1)
Quarter: 2015Q4

REPORT INFORMATION
  Report Type: Spontaneous
  Country: US (occurrence: US)
  Receive Date: 20151120
  Receipt Date: 20151120
  Transmission Date: 20160304
  Serious: No
  Sender: FDA-Public Use
  Company Number: US-ELI_LILLY_AND_COMPANY-US201301004356

PATIENT
  Age: 79 Year
  Sex: Female

DRUGS (4)
  1. TOPROL XL [Concomitant]
     Active Substance: METOPROLOL SUCCINATE
  2. FORTEO [Suspect]
     Active Substance: TERIPARATIDE
     Indication: OSTEOPOROSIS
     Dosage: 20 UG, QD
     Route: 065
     Dates: start: 20130110, end: 201301
  3. SINGULAIR [Concomitant]
     Active Substance: MONTELUKAST SODIUM
  4. NASONEX [Concomitant]
     Active Substance: MOMETASONE FUROATE

REACTIONS (4)
  - Fatigue [Not Recovered/Not Resolved]
  - Memory impairment [Unknown]
  - Asthenia [Unknown]
  - Feeling hot [Unknown]

NARRATIVE: CASE EVENT DATE: 201301
